FAERS Safety Report 19327066 (Version 1)
Quarter: 2021Q2

REPORT INFORMATION
  Report Type: Spontaneous
  Country: US (occurrence: US)
  Receive Date: 20210528
  Receipt Date: 20210528
  Transmission Date: 20210717
  Serious: Yes (Hospitalization, Other)
  Sender: FDA-Public Use
  Company Number: US-AMGEN-USASP2021079154

PATIENT
  Age: 72 Year
  Sex: Female

DRUGS (12)
  1. CALTRATE [Concomitant]
     Active Substance: CALCIUM CARBONATE
  2. CARAFATE [Concomitant]
     Active Substance: SUCRALFATE
  3. PROLIA [Suspect]
     Active Substance: DENOSUMAB
     Indication: OSTEOPENIA
     Dosage: UNK
     Route: 065
  4. DEXILANT [Concomitant]
     Active Substance: DEXLANSOPRAZOLE
  5. AMLODIPINE [Concomitant]
     Active Substance: AMLODIPINE BESYLATE
  6. ASPIRIN [ACETYLSALICYLIC ACID] [Concomitant]
     Active Substance: ASPIRIN
  7. BRILINTA [Concomitant]
     Active Substance: TICAGRELOR
  8. DICYCLOMINE [Concomitant]
     Active Substance: DICYCLOMINE HYDROCHLORIDE
  9. ISOSORBIDE MONONITE [Concomitant]
  10. METOPROLOL. [Concomitant]
     Active Substance: METOPROLOL
  11. ATORVASTATIN [Concomitant]
     Active Substance: ATORVASTATIN
  12. LYRICA [Concomitant]
     Active Substance: PREGABALIN
     Dosage: 100MG TIMES THREE

REACTIONS (7)
  - Back pain [Not Recovered/Not Resolved]
  - Myocardial infarction [Unknown]
  - Arthralgia [Not Recovered/Not Resolved]
  - Dyspnoea exertional [Unknown]
  - Off label use [Unknown]
  - Unevaluable event [Unknown]
  - Renal vessel disorder [Unknown]

NARRATIVE: CASE EVENT DATE: 2020
